FAERS Safety Report 8605399-8 (Version None)
Quarter: 2012Q3

REPORT INFORMATION
  Report Type: 
  Country: None (occurrence: None)
  Receive Date: 20120807
  Receipt Date: 20120723
  Transmission Date: 20120928
  Serious: Yes (Hospitalization)
  Sender: FDA-Public Use
  Company Number: 2012SGN00330

PATIENT
  Sex: Female

DRUGS (19)
  1. DORZOLAMIDE W/TIMOLOL (DORZOLAMIDE WLTIMOLOL) EYE DROPS, [Concomitant]
  2. BRIMONIDINE TARTRATE (BRIMONIDINE TARTRATE) EYE DROPS, 0.15 % [Concomitant]
  3. NEUPOGEN [Concomitant]
  4. ESCITALOPRAM [Concomitant]
  5. DACARBAZINE [Suspect]
     Indication: HODGKIN'S DISEASE
     Dosage: 25 MG/M2,
     Dates: start: 20120710, end: 20120710
  6. COLACE (DOCUSATE SODIUM) [Concomitant]
  7. LORAZEPAM [Concomitant]
  8. IBUPROFEN [Concomitant]
  9. CETIRIZINE (CETIRIZINE HYDROCHLORIDE) [Concomitant]
  10. ADRIAMYCIN (DOXORUBICIN) [Suspect]
     Indication: HODGKIN'S DISEASE
     Dosage: 375 MG/M2,
     Dates: start: 20120710, end: 20120710
  11. MESALAMINE [Concomitant]
  12. AMOXICILLIN W/CLAVULANIC ACID (AMOXICILLIN W/CLAVULANIC ACID) [Concomitant]
  13. OMEPRAZOLE [Concomitant]
  14. BRENTUXIMAB VEDOTIN (BRENTUXIMAB VEDOTIN) INJECTION [Suspect]
     Indication: HODGKIN'S DISEASE
     Dosage: 1.2 MG/KG,
     Dates: start: 20120710, end: 20120710
  15. ACYCLOVIR [Concomitant]
  16. VINBLASTINE SULFATE [Suspect]
     Indication: HODGKIN'S DISEASE
     Dosage: 6 MG/M2,
     Dates: start: 20120710, end: 20120710
  17. OTHER AGENTS FOR LOCAL ORAL TREATMENT (BENEDRYL, LIDOCAINE, MAALOX) MO [Concomitant]
  18. ZOFRAN [Concomitant]
  19. OXYCODONE HCL [Concomitant]

REACTIONS (1)
  - FEBRILE NEUTROPENIA [None]
